FAERS Safety Report 10167320 (Version 1)
Quarter: 2014Q2

REPORT INFORMATION
  Report Type: Spontaneous
  Country: JP (occurrence: JP)
  Receive Date: 20140512
  Receipt Date: 20140512
  Transmission Date: 20141212
  Serious: Yes (Other)
  Sender: FDA-Public Use
  Company Number: JP-PFIZER INC-2014128439

PATIENT
  Sex: Female

DRUGS (1)
  1. CELECOX [Suspect]
     Indication: INTERVERTEBRAL DISC PROTRUSION
     Dosage: 400 MG, UNK
     Route: 048
     Dates: end: 201404

REACTIONS (4)
  - Surgery [Unknown]
  - Chest pain [Not Recovered/Not Resolved]
  - Tachycardia [Not Recovered/Not Resolved]
  - Off label use [Unknown]
